FAERS Safety Report 7035178-7 (Version None)
Quarter: 2010Q4

REPORT INFORMATION
  Report Type: 
  Country: None (occurrence: None)
  Receive Date: 20101008
  Receipt Date: 20101004
  Transmission Date: 20110411
  Serious: Yes (Life-Threatening)
  Sender: FDA-Public Use
  Company Number: US-BAYER-201030293NA

PATIENT
  Age: 60 Year
  Sex: Male

DRUGS (1)
  1. AVELOX [Suspect]
     Indication: RESPIRATORY TRACT INFECTION
     Route: 048

REACTIONS (2)
  - ANAPHYLACTIC SHOCK [None]
  - DYSPNOEA [None]
